FAERS Safety Report 15904404 (Version 1)
Quarter: 2019Q1

REPORT INFORMATION
  Report Type: Spontaneous
  Country: AU (occurrence: AU)
  Receive Date: 20190204
  Receipt Date: 20190204
  Transmission Date: 20190417
  Serious: Yes (Other)
  Sender: FDA-Public Use
  Company Number: AU-TEVA-2019-AU-1004756

PATIENT
  Sex: Male

DRUGS (6)
  1. DOXORUBICIN [Suspect]
     Active Substance: DOXORUBICIN
     Route: 065
  2. ALLOPURINOL. [Suspect]
     Active Substance: ALLOPURINOL
     Route: 065
  3. PACLITAXEL. [Suspect]
     Active Substance: PACLITAXEL
     Dosage: DOSAGE UNKNOWN
     Route: 065
  4. CARBOPLATIN. [Suspect]
     Active Substance: CARBOPLATIN
     Route: 065
  5. CISPLATIN. [Suspect]
     Active Substance: CISPLATIN
     Route: 065
  6. THYROXINE [Concomitant]
     Active Substance: LEVOTHYROXINE

REACTIONS (3)
  - Malignant neoplasm progression [Unknown]
  - Metastases to lung [Unknown]
  - Thyroid cancer metastatic [Unknown]
